FAERS Safety Report 6126662-9 (Version None)
Quarter: 2009Q1

REPORT INFORMATION
  Report Type: 
  Country: None (occurrence: None)
  Receive Date: 20090320
  Receipt Date: 20090309
  Transmission Date: 20090719
  Serious: Yes (Other)
  Sender: FDA-Public Use
  Company Number: DE-PFIZER INC-2009180342

PATIENT

DRUGS (3)
  1. SORTIS [Interacting]
     Dosage: 10 MG, 1X/DAY
     Route: 048
  2. DOXYCYCLINE HYCLATE [Suspect]
     Dosage: UNK
  3. CIPROBAY [Interacting]
     Dosage: UNK

REACTIONS (2)
  - DYSPNOEA [None]
  - HYPERSENSITIVITY [None]
